FAERS Safety Report 8263218-6 (Version None)
Quarter: 2012Q1

REPORT INFORMATION
  Report Type: 
  Country: None (occurrence: None)
  Receive Date: 20120327
  Receipt Date: 20110422
  Transmission Date: 20120608
  Serious: Yes (Hospitalization)
  Sender: FDA-Public Use
  Company Number: PHHY2011US34488

PATIENT
  Age: 86 Year
  Sex: Male

DRUGS (10)
  1. ASPIRIN [Concomitant]
  2. ASCORBIC ACID [Concomitant]
  3. SIMVASTATIN [Concomitant]
  4. METOPROLOL TARTRATE [Concomitant]
  5. GLEEVEC [Suspect]
     Indication: CHRONIC MYELOID LEUKAEMIA
     Dosage: 400 MG,
     Dates: start: 20101114, end: 20110405
  6. COUMADIN [Concomitant]
  7. FLOMAX [Concomitant]
  8. VITAMIN D [Concomitant]
  9. RAMIPRIL [Concomitant]
  10. PROSCAR [Concomitant]

REACTIONS (4)
  - DIARRHOEA [None]
  - DEHYDRATION [None]
  - MUSCLE SPASMS [None]
  - ESCHERICHIA INFECTION [None]
